FAERS Safety Report 6218804-1 (Version None)
Quarter: 2009Q2

REPORT INFORMATION
  Report Type: 
  Country: None (occurrence: None)
  Receive Date: 20090608
  Receipt Date: 20090525
  Transmission Date: 20091009
  Serious: Yes (Hospitalization, Other)
  Sender: FDA-Public Use
  Company Number: SE-ELI_LILLY_AND_COMPANY-SE200905005886

PATIENT
  Age: 56 Year
  Sex: Female

DRUGS (6)
  1. FONTEX [Suspect]
     Indication: NEUROSIS
     Dosage: 40 MG, DAILY (1/D)
     Dates: start: 19991112, end: 20010419
  2. VISKEN [Concomitant]
  3. PULMICORT-100 [Concomitant]
     Route: 055
  4. LANSOPRAZOLE [Concomitant]
  5. COZAAR [Concomitant]
  6. RHINOCORT [Concomitant]
     Route: 045

REACTIONS (3)
  - EOSINOPHILIC PNEUMONIA [None]
  - SYNCOPE [None]
  - VASCULITIS [None]
